FAERS Safety Report 11653173 (Version 7)
Quarter: 2016Q2

REPORT INFORMATION
  Report Type: Spontaneous
  Country: US (occurrence: US)
  Receive Date: 20151022
  Receipt Date: 20160510
  Transmission Date: 20160815
  Serious: Yes (Hospitalization, Other)
  Sender: FDA-Public Use
  Company Number: US-CELGENEUS-USA-2015104576

PATIENT
  Age: 73 Year
  Sex: Male

DRUGS (35)
  1. POMALYST [Suspect]
     Active Substance: POMALIDOMIDE
     Indication: PLASMA CELL MYELOMA
     Route: 048
     Dates: start: 20150529
  2. POMALYST [Suspect]
     Active Substance: POMALIDOMIDE
     Route: 048
     Dates: start: 20150918
  3. MYCOSTATIN [Concomitant]
     Active Substance: NYSTATIN
     Indication: PRODUCT USED FOR UNKNOWN INDICATION
     Route: 048
  4. XANAX [Concomitant]
     Active Substance: ALPRAZOLAM
     Route: 048
  5. PROZAC [Concomitant]
     Active Substance: FLUOXETINE HYDROCHLORIDE
     Route: 048
  6. NITROLINGUAL [Concomitant]
     Active Substance: NITROGLYCERIN
     Route: 048
  7. VALTREX [Concomitant]
     Active Substance: VALACYCLOVIR HYDROCHLORIDE
     Route: 048
  8. VITAMIN D [Concomitant]
     Active Substance: CHOLECALCIFEROL
     Route: 048
  9. MYCOSTATIN [Concomitant]
     Active Substance: NYSTATIN
     Route: 048
  10. NOVOLOG [Concomitant]
     Active Substance: INSULIN ASPART
     Indication: PRODUCT USED FOR UNKNOWN INDICATION
     Dosage: (100 UNIT/ML) 3 UNITS
     Route: 058
  11. LANTUS [Concomitant]
     Active Substance: INSULIN GLARGINE
     Indication: PRODUCT USED FOR UNKNOWN INDICATION
     Dosage: (100 UNIT/ML) 12 UNITS
     Route: 058
  12. LANTUS [Concomitant]
     Active Substance: INSULIN GLARGINE
     Route: 048
  13. LOTRIMIN AF ANTIFUNGAL [Concomitant]
     Active Substance: MICONAZOLE NITRATE
     Route: 048
  14. DECADRON [Concomitant]
     Active Substance: DEXAMETHASONE
     Indication: PRODUCT USED FOR UNKNOWN INDICATION
     Route: 048
  15. DECADRON [Concomitant]
     Active Substance: DEXAMETHASONE
     Route: 048
  16. COREG [Concomitant]
     Active Substance: CARVEDILOL
     Indication: PRODUCT USED FOR UNKNOWN INDICATION
     Route: 048
  17. NOVOLOG [Concomitant]
     Active Substance: INSULIN ASPART
     Route: 048
  18. POMALYST [Suspect]
     Active Substance: POMALIDOMIDE
     Route: 048
     Dates: start: 201506, end: 20151009
  19. COREG [Concomitant]
     Active Substance: CARVEDILOL
     Route: 048
  20. LOTRIMIN AF ANTIFUNGAL [Concomitant]
     Active Substance: MICONAZOLE NITRATE
     Indication: PRODUCT USED FOR UNKNOWN INDICATION
     Route: 065
  21. XANAX [Concomitant]
     Active Substance: ALPRAZOLAM
     Indication: PRODUCT USED FOR UNKNOWN INDICATION
     Route: 048
  22. PROZAC [Concomitant]
     Active Substance: FLUOXETINE HYDROCHLORIDE
     Indication: PRODUCT USED FOR UNKNOWN INDICATION
     Route: 048
  23. ASPIRIN. [Concomitant]
     Active Substance: ASPIRIN
     Route: 048
  24. TYLENOL EXT ST ARTHRITIS PAIN [Concomitant]
     Indication: ARTHRITIS
     Route: 048
  25. VITAMIN D [Concomitant]
     Active Substance: CHOLECALCIFEROL
     Indication: PRODUCT USED FOR UNKNOWN INDICATION
     Dosage: 1000 UNITS
     Route: 048
  26. PRILOSEC [Concomitant]
     Active Substance: OMEPRAZOLE MAGNESIUM
     Route: 048
  27. PRAVACHOL [Concomitant]
     Active Substance: PRAVASTATIN SODIUM
     Route: 048
  28. NITROLINGUAL [Concomitant]
     Active Substance: NITROGLYCERIN
     Indication: PAIN
     Route: 048
  29. PRILOSEC [Concomitant]
     Active Substance: OMEPRAZOLE MAGNESIUM
     Indication: PRODUCT USED FOR UNKNOWN INDICATION
     Route: 048
  30. ASPIRIN. [Concomitant]
     Active Substance: ASPIRIN
     Indication: PRODUCT USED FOR UNKNOWN INDICATION
     Route: 048
  31. RANEXA [Concomitant]
     Active Substance: RANOLAZINE
     Indication: PAIN
     Route: 048
  32. VALTREX [Concomitant]
     Active Substance: VALACYCLOVIR HYDROCHLORIDE
     Indication: PRODUCT USED FOR UNKNOWN INDICATION
     Route: 048
  33. TYLENOL EXT ST ARTHRITIS PAIN [Concomitant]
     Route: 048
  34. RANEXA [Concomitant]
     Active Substance: RANOLAZINE
     Route: 048
  35. PRAVACHOL [Concomitant]
     Active Substance: PRAVASTATIN SODIUM
     Indication: PRODUCT USED FOR UNKNOWN INDICATION
     Route: 048

REACTIONS (9)
  - Cough [Unknown]
  - Cytopenia [Unknown]
  - White blood cell count increased [Unknown]
  - Urinary incontinence [Recovered/Resolved]
  - Deep vein thrombosis [Unknown]
  - Muscular weakness [Recovering/Resolving]
  - Plasma cell myeloma [Unknown]
  - White blood cell count decreased [Recovered/Resolved]
  - Upper respiratory tract infection [Recovered/Resolved]

NARRATIVE: CASE EVENT DATE: 2015
